FAERS Safety Report 6518735-3 (Version None)
Quarter: 2009Q4

REPORT INFORMATION
  Report Type: 
  Country: None (occurrence: None)
  Receive Date: 20091228
  Receipt Date: 20091223
  Transmission Date: 20100525
  Serious: Yes (Death, Other)
  Sender: FDA-Public Use
  Company Number: PHEH2009US13782

PATIENT
  Sex: Male

DRUGS (6)
  1. EXJADE [Suspect]
     Dosage: 1000 MG, QD
     Route: 048
     Dates: start: 20070328, end: 20091006
  2. BLOOD TRANSFUSION, AUXILIARY PRODUCTS [Concomitant]
  3. COUMADIN [Concomitant]
     Indication: DEEP VEIN THROMBOSIS
     Dosage: 10 MG, UNK
     Route: 048
  4. DILAUDID [Concomitant]
     Dosage: 4MG Q 3-4 HRS PRN
     Route: 048
  5. LASIX [Concomitant]
     Dosage: 20 MG, QD
     Route: 048
  6. FOLIC ACID [Concomitant]
     Dosage: 1 MG, QD
     Route: 048

REACTIONS (2)
  - DEATH [None]
  - UNRESPONSIVE TO STIMULI [None]
